FAERS Safety Report 15099887 (Version 2)
Quarter: 2023Q4

REPORT INFORMATION
  Report Type: Report from Study
  Country: KR (occurrence: KR)
  Receive Date: 20180703
  Receipt Date: 20231030
  Transmission Date: 20240109
  Serious: Yes (Hospitalization)
  Sender: FDA-Public Use
  Company Number: KR-KYOWAKIRIN-2018AKK002806

PATIENT
  Age: 55 Year
  Sex: Female

DRUGS (5)
  1. PEGFILGRASTIM [Suspect]
     Active Substance: PEGFILGRASTIM
     Indication: Breast cancer
     Dosage: 6 MG * 1
     Route: 058
     Dates: start: 20180510, end: 20180510
  2. DOXORUBICIN [Concomitant]
     Active Substance: DOXORUBICIN
     Indication: Breast cancer
     Dosage: 90 MILLIGRAM
     Dates: start: 20180412, end: 20180412
  3. DOXORUBICIN [Concomitant]
     Active Substance: DOXORUBICIN
     Dosage: 90 MILLIGRAM
     Dates: start: 20180503, end: 20180503
  4. CYCLOPHOSPHAMIDE [Concomitant]
     Active Substance: CYCLOPHOSPHAMIDE
     Indication: Breast cancer
     Dosage: 900 MILLIGRAM
     Dates: start: 20180412, end: 20180412
  5. CYCLOPHOSPHAMIDE [Concomitant]
     Active Substance: CYCLOPHOSPHAMIDE
     Dosage: 900 MILLIGRAM
     Dates: start: 20180503, end: 20180503

REACTIONS (1)
  - Haemorrhoids thrombosed [Recovered/Resolved]

NARRATIVE: CASE EVENT DATE: 20180518
